FAERS Safety Report 8017202-8 (Version None)
Quarter: 2012Q1

REPORT INFORMATION
  Report Type: 
  Country: None (occurrence: None)
  Receive Date: 20120102
  Receipt Date: 20111219
  Transmission Date: 20120608
  Serious: Yes (Other)
  Sender: FDA-Public Use
  Company Number: JP-ROCHE-1025830

PATIENT
  Sex: Male

DRUGS (8)
  1. RADICUT [Concomitant]
     Route: 041
     Dates: start: 20111004, end: 20111011
  2. VITAMEDIN [Concomitant]
     Dosage: 1 VIAL DAILY
     Route: 041
     Dates: start: 20111005, end: 20111011
  3. HEPARIN [Concomitant]
     Route: 041
     Dates: start: 20111006, end: 20111013
  4. ATELEC [Concomitant]
     Route: 048
  5. BISOPROLOL FUMARATE [Concomitant]
     Route: 048
  6. GRTPA [Suspect]
     Indication: CEREBRAL INFARCTION
     Route: 041
     Dates: start: 20111004, end: 20111004
  7. FAMOTIDINE [Concomitant]
     Route: 042
     Dates: start: 20111005, end: 20111011
  8. WARFARIN SODIUM [Concomitant]
     Route: 048
     Dates: start: 20111011

REACTIONS (1)
  - WHITE BLOOD CELL COUNT DECREASED [None]
